FAERS Safety Report 25830664 (Version 1)
Quarter: 2025Q3

REPORT INFORMATION
  Report Type: Spontaneous
  Country: US (occurrence: None)
  Receive Date: 20250919
  Receipt Date: 20250919
  Transmission Date: 20251020
  Serious: Yes (Other)
  Sender: FDA-CTU
  Company Number: None

PATIENT
  Age: 34 Year
  Sex: Male

DRUGS (3)
  1. CYANOCOBALAMIN\TOPIRAMATE [Suspect]
     Active Substance: CYANOCOBALAMIN\TOPIRAMATE
     Indication: Weight decreased
     Dosage: TWICE A DAY ORAL
     Route: 048
  2. BUPROPION [Suspect]
     Active Substance: BUPROPION
  3. METFORMIN [Suspect]
     Active Substance: METFORMIN HYDROCHLORIDE

REACTIONS (8)
  - Cough [None]
  - Anxiety [None]
  - Constipation [None]
  - Alopecia [None]
  - Insomnia [None]
  - Urticaria [None]
  - Lip swelling [None]
  - Therapy cessation [None]

NARRATIVE: CASE EVENT DATE: 20250512
